FAERS Safety Report 9531588 (Version 1)
Quarter: 2013Q3

REPORT INFORMATION
  Report Type: Spontaneous
  Country: CH (occurrence: CH)
  Receive Date: 20130918
  Receipt Date: 20130918
  Transmission Date: 20140515
  Serious: Yes (Hospitalization)
  Sender: FDA-Public Use
  Company Number: CH-JNJFOC-20130907197

PATIENT
  Age: 17 Year
  Sex: Female

DRUGS (5)
  1. TOPIRAMATE [Suspect]
     Indication: AFFECT LABILITY
     Route: 048
  2. TOPIRAMATE [Suspect]
     Indication: AFFECT LABILITY
     Route: 048
  3. TOPIRAMATE [Suspect]
     Indication: BORDERLINE PERSONALITY DISORDER
     Route: 048
  4. TOPIRAMATE [Suspect]
     Indication: BORDERLINE PERSONALITY DISORDER
     Route: 048
  5. ESCITALOPRAM [Suspect]
     Indication: BORDERLINE PERSONALITY DISORDER
     Route: 065

REACTIONS (2)
  - Panic attack [Recovered/Resolved]
  - Off label use [Unknown]
